FAERS Safety Report 20471059 (Version 2)
Quarter: 2022Q1

REPORT INFORMATION
  Report Type: Report from Study
  Country: US (occurrence: US)
  Receive Date: 20220214
  Receipt Date: 20220324
  Transmission Date: 20220423
  Serious: Yes (Other)
  Sender: FDA-Public Use
  Company Number: US-GILEAD-2022-0565288

PATIENT
  Age: 21 Year
  Sex: Female

DRUGS (1)
  1. AZTREONAM LYSINE [Suspect]
     Active Substance: AZTREONAM LYSINE
     Indication: Cystic fibrosis lung
     Dosage: 75 MG, TID ALTERNATE EVERY OTHER 28 DAYS
     Route: 065

REACTIONS (5)
  - Therapeutic product effect decreased [Unknown]
  - Lung operation [Not Recovered/Not Resolved]
  - Pneumothorax [Recovered/Resolved]
  - COVID-19 [Not Recovered/Not Resolved]
  - Condition aggravated [Unknown]

NARRATIVE: CASE EVENT DATE: 20220128
